FAERS Safety Report 19089315 (Version 2)
Quarter: 2021Q2

REPORT INFORMATION
  Report Type: Report from Study
  Country: KE (occurrence: KE)
  Receive Date: 20210403
  Receipt Date: 20210512
  Transmission Date: 20210717
  Serious: Yes (Hospitalization, Other)
  Sender: FDA-Public Use
  Company Number: KE-CIPLA LTD.-2021KE02498

PATIENT

DRUGS (7)
  1. ABACAVIR/LAMIVUDINE [Suspect]
     Active Substance: ABACAVIR\LAMIVUDINE
     Dosage: 120/60 MG BID
     Route: 048
     Dates: start: 20171023, end: 20180924
  2. ABACAVIR/LAMIVUDINE [Suspect]
     Active Substance: ABACAVIR\LAMIVUDINE
     Indication: HIV INFECTION
     Dosage: 90/45 MG, BID
     Route: 048
     Dates: start: 20160803, end: 20180924
  3. ABACAVIR/LAMIVUDINE [Suspect]
     Active Substance: ABACAVIR\LAMIVUDINE
     Indication: HIV INFECTION
     Dosage: 90/45 MG BID
     Route: 048
     Dates: start: 20170214, end: 20171022
  4. BACTRIM [Concomitant]
     Active Substance: SULFAMETHOXAZOLE\TRIMETHOPRIM
     Indication: ANTIFUNGAL PROPHYLAXIS
     Dosage: 240 MILLIGRAM, QD
     Route: 048
     Dates: start: 20160803
  5. LOPINAVIR/RITONAVIR [Suspect]
     Active Substance: LOPINAVIR\RITONAVIR
     Indication: HIV INFECTION
     Dosage: 120/30 MG BID
     Route: 048
     Dates: start: 20170214, end: 20171022
  6. LOPINAVIR/RITONAVIR [Suspect]
     Active Substance: LOPINAVIR\RITONAVIR
     Dosage: 160/40 MG BID
     Route: 048
     Dates: start: 20171023, end: 20180924
  7. KALETRA [Suspect]
     Active Substance: LOPINAVIR\RITONAVIR
     Indication: HIV INFECTION
     Dosage: 1.5 MILLILITER, BID
     Route: 048
     Dates: start: 20160803, end: 20170213

REACTIONS (2)
  - Gastroenteritis [Recovered/Resolved]
  - Malaria [Recovered/Resolved]

NARRATIVE: CASE EVENT DATE: 20180917
